FAERS Safety Report 7804064-4 (Version None)
Quarter: 2011Q4

REPORT INFORMATION
  Report Type: 
  Country: None (occurrence: None)
  Receive Date: 20111010
  Receipt Date: 20110622
  Transmission Date: 20120403
  Serious: No
  Sender: FDA-Public Use
  Company Number: US-BAYER-2011-054518

PATIENT
  Age: 73 Year
  Sex: Male

DRUGS (2)
  1. NEXAVAR [Suspect]
     Indication: HEPATIC NEOPLASM MALIGNANT
     Dosage: 400 MG, BID
     Route: 048
     Dates: start: 20110201
  2. NEXAVAR [Suspect]
     Dosage: 200 MG, BID
     Route: 048

REACTIONS (3)
  - UNEVALUABLE EVENT [None]
  - FATIGUE [None]
  - WEIGHT DECREASED [None]
